FAERS Safety Report 9854690 (Version 4)
Quarter: 2015Q2

REPORT INFORMATION
  Report Type: Spontaneous
  Country: US (occurrence: US)
  Receive Date: 20140130
  Receipt Date: 20150520
  Transmission Date: 20150821
  Serious: Yes (Death)
  Sender: FDA-Public Use
  Company Number: US-BEH-2014040414

PATIENT
  Age: 73 Year
  Sex: Male

DRUGS (6)
  1. MEROPENEM. [Concomitant]
     Active Substance: MEROPENEM
  2. PREDNISONE. [Concomitant]
     Active Substance: PREDNISONE
     Indication: IMMUNOSUPPRESSION
     Route: 048
  3. IVIG [Suspect]
     Active Substance: HUMAN IMMUNOGLOBULIN G
     Indication: WEST NILE VIRUS TEST POSITIVE
     Dosage: 400MG/KG ON DAYS 6,8 AND 10
     Route: 042
  4. VANCOMYCIN [Concomitant]
     Active Substance: VANCOMYCIN
  5. VORICONAZOLE. [Concomitant]
     Active Substance: VORICONAZOLE
  6. TACROLIMUS. [Concomitant]
     Active Substance: TACROLIMUS
     Indication: IMMUNOSUPPRESSION
     Dosage: 1MG TWICE DAILY (TROUGH:4-6 NG/ML)

REACTIONS (3)
  - Drug ineffective [Fatal]
  - Haemodynamic instability [Fatal]
  - Neurological decompensation [Fatal]
